FAERS Safety Report 14296329 (Version 4)
Quarter: 2018Q1

REPORT INFORMATION
  Report Type: Spontaneous
  Country: JP (occurrence: JP)
  Receive Date: 20171218
  Receipt Date: 20180215
  Transmission Date: 20180509
  Serious: Yes (Death, Life-Threatening, Hospitalization, Other)
  Sender: FDA-Public Use
  Company Number: JP-009507513-1712JPN001192J

PATIENT
  Age: 73 Year
  Sex: Male

DRUGS (4)
  1. DECADRON [Concomitant]
     Active Substance: DEXAMETHASONE
     Dosage: 4 MG, QD
     Route: 048
  2. MAGMITT [Concomitant]
     Active Substance: MAGNESIUM OXIDE
     Dosage: 330 MG, QD
     Route: 048
  3. KEYTRUDA [Suspect]
     Active Substance: PEMBROLIZUMAB
     Indication: LUNG ADENOCARCINOMA
     Dosage: 200 MG, Q3W
     Route: 041
     Dates: start: 20171011, end: 20171011
  4. CALONAL [Concomitant]
     Active Substance: ACETAMINOPHEN
     Dosage: 50 MG, QD
     Route: 048

REACTIONS (2)
  - Malignant neoplasm progression [Fatal]
  - Renal impairment [Recovering/Resolving]

NARRATIVE: CASE EVENT DATE: 20171101
